FAERS Safety Report 5411661-2 (Version None)
Quarter: 2007Q3

REPORT INFORMATION
  Report Type: 
  Country: None (occurrence: None)
  Receive Date: 20070810
  Receipt Date: 20070807
  Transmission Date: 20080115
  Serious: Yes (Hospitalization)
  Sender: FDA-Public Use
  Company Number: FR-MERCK-0708FRA00016

PATIENT
  Age: 79 Year
  Sex: Female

DRUGS (13)
  1. COZAAR [Suspect]
     Indication: HYPERTENSION
     Route: 048
  2. DIGOXIN [Suspect]
     Indication: ATRIAL FIBRILLATION
     Route: 048
     Dates: end: 20050104
  3. DIGOXIN [Suspect]
     Route: 048
     Dates: start: 20050101
  4. DIGOXIN [Suspect]
     Indication: CARDIAC FAILURE CONGESTIVE
     Route: 048
     Dates: end: 20050104
  5. DIGOXIN [Suspect]
     Route: 048
     Dates: start: 20050101
  6. FUROSEMIDE [Suspect]
     Indication: CARDIAC FAILURE CONGESTIVE
     Route: 048
     Dates: end: 20050104
  7. FUROSEMIDE [Suspect]
     Route: 048
     Dates: start: 20050101
  8. SPIRONOLACTONE [Suspect]
     Indication: CARDIAC FAILURE CONGESTIVE
     Route: 048
     Dates: end: 20050104
  9. SPIRONOLACTONE [Suspect]
     Route: 048
     Dates: start: 20050101
  10. BISOPROLOL FUMARATE [Concomitant]
     Indication: HYPERTENSION
     Route: 048
     Dates: end: 20050104
  11. BISOPROLOL FUMARATE [Concomitant]
     Route: 048
     Dates: start: 20050101
  12. WARFARIN [Concomitant]
     Indication: ATRIAL FIBRILLATION
     Route: 048
  13. WARFARIN [Concomitant]
     Indication: CARDIAC FAILURE CONGESTIVE
     Route: 048

REACTIONS (5)
  - BRADYCARDIA [None]
  - CARDIOACTIVE DRUG LEVEL INCREASED [None]
  - DEHYDRATION [None]
  - DIARRHOEA [None]
  - RENAL FAILURE [None]
